FAERS Safety Report 4595545-8 (Version None)
Quarter: 2005Q1

REPORT INFORMATION
  Report Type: 
  Country: None (occurrence: None)
  Receive Date: 20050224
  Receipt Date: 20050203
  Transmission Date: 20050727
  Serious: Yes (Other)
  Sender: FDA-Public Use
  Company Number: USA040670768

PATIENT
  Age: 75 Year
  Sex: Female

DRUGS (7)
  1. FORTEO [Suspect]
     Indication: OSTEOPOROSIS
     Dosage: 20 UG DAY
     Dates: start: 20040318
  2. ALBUTEROL [Concomitant]
  3. MEDROL (MEDTHYLPREDNISOLONE) [Concomitant]
  4. SINGULAIR (MONTELUKAST) [Concomitant]
  5. ADVAIR DISKUS 100/50 [Concomitant]
  6. NEXIUM [Concomitant]
  7. CALCIUM GLUCONATE [Concomitant]

REACTIONS (7)
  - ASTHENIA [None]
  - COLON CANCER [None]
  - FATIGUE [None]
  - PAIN [None]
  - PHARMACEUTICAL PRODUCT COMPLAINT [None]
  - SENSORY DISTURBANCE [None]
  - TREMOR [None]
